FAERS Safety Report 9380630 (Version 1)
Quarter: 2013Q3

REPORT INFORMATION
  Report Type: Report from Study
  Country: CA (occurrence: CA)
  Receive Date: 20130702
  Receipt Date: 20130702
  Transmission Date: 20140515
  Serious: Yes (Hospitalization, Other)
  Sender: FDA-Public Use
  Company Number: CA-ABBOTT-13P-028-1098925-00

PATIENT
  Age: 36 Year
  Sex: Male
  Weight: 90.6 kg

DRUGS (1)
  1. HUMIRA [Suspect]
     Indication: ANKYLOSING SPONDYLITIS
     Route: 058
     Dates: start: 20130204, end: 20130218

REACTIONS (3)
  - Pancreatitis acute [Recovered/Resolved with Sequelae]
  - Pancreatitis [Unknown]
  - Pseudocyst [Unknown]
